FAERS Safety Report 9387790 (Version 2)
Quarter: 2013Q4

REPORT INFORMATION
  Report Type: Spontaneous
  Country: GB (occurrence: None)
  Receive Date: 20130703
  Receipt Date: 20131105
  Transmission Date: 20140711
  Serious: Yes (Other)
  Sender: FDA-Public Use
  Company Number: GB-DEXPHARM-20130383

PATIENT
  Age: 81 Year
  Sex: Female

DRUGS (7)
  1. OMEPRAZOLE [Suspect]
     Indication: GASTROOESOPHAGEAL REFLUX DISEASE
     Route: 048
     Dates: start: 20130607
  2. ASPIRIN [Concomitant]
  3. BISOPROLOL [Concomitant]
  4. DOXAZOSIN [Concomitant]
  5. LISINOPRIL [Concomitant]
  6. FUROSEMIDE [Suspect]
  7. METFORMIN [Concomitant]

REACTIONS (2)
  - Hypomagnesaemia [None]
  - Hypocalcaemia [None]
